FAERS Safety Report 12890732 (Version 1)
Quarter: 2016Q4

REPORT INFORMATION
  Report Type: Spontaneous
  Country: US (occurrence: US)
  Receive Date: 20161027
  Receipt Date: 20161027
  Transmission Date: 20170207
  Serious: No
  Sender: FDA-Public Use
  Company Number: US-JAZZ-2016-US-015527

PATIENT
  Age: 5 Year
  Sex: Female

DRUGS (5)
  1. METHYLIN [Concomitant]
     Active Substance: METHYLPHENIDATE HYDROCHLORIDE
  2. XYREM [Suspect]
     Active Substance: SODIUM OXYBATE
     Indication: NARCOLEPSY
     Dosage: 1.125 G, BID
     Route: 048
     Dates: start: 201608, end: 201608
  3. XYREM [Suspect]
     Active Substance: SODIUM OXYBATE
     Dosage: 1 G, BID
     Route: 048
     Dates: start: 201608
  4. ISONIAZID. [Concomitant]
     Active Substance: ISONIAZID
  5. XYREM [Suspect]
     Active Substance: SODIUM OXYBATE
     Indication: CATAPLEXY
     Dosage: 2.25 G, BID
     Route: 048
     Dates: start: 20160815, end: 201608

REACTIONS (8)
  - Lip dry [Recovering/Resolving]
  - Asthenia [Recovering/Resolving]
  - Unevaluable event [Not Recovered/Not Resolved]
  - Pallor [Recovering/Resolving]
  - Intentional product use issue [Unknown]
  - Urinary incontinence [Recovering/Resolving]
  - Dry mouth [Recovering/Resolving]
  - Movement disorder [Recovering/Resolving]

NARRATIVE: CASE EVENT DATE: 201608
